FAERS Safety Report 8829776 (Version 1)
Quarter: 2012Q4

REPORT INFORMATION
  Report Type: 
  Country: US (occurrence: US)
  Receive Date: 20121008
  Receipt Date: 20121008
  Transmission Date: 20130627
  Serious: Yes (Other)
  Sender: FDA-Public Use
  Company Number: US-ASTRAZENECA-2012SE74922

PATIENT
  Age: 71 Year
  Sex: Female
  Weight: 52.2 kg

DRUGS (15)
  1. PULMICORT FLEXHALER [Suspect]
     Indication: EMPHYSEMA
     Route: 055
  2. PULMICORT FLEXHALER [Suspect]
     Indication: CHRONIC OBSTRUCTIVE PULMONARY DISEASE
     Route: 055
  3. PULMICORT FLEXHALER [Suspect]
     Indication: ASTHMA
     Route: 055
  4. PULMICORT FLEXHALER [Suspect]
     Indication: EMPHYSEMA
     Route: 055
  5. PULMICORT FLEXHALER [Suspect]
     Indication: CHRONIC OBSTRUCTIVE PULMONARY DISEASE
     Route: 055
  6. PULMICORT FLEXHALER [Suspect]
     Indication: ASTHMA
     Route: 055
  7. PULMICORT FLEXHALER [Suspect]
     Indication: EMPHYSEMA
     Route: 055
  8. PULMICORT FLEXHALER [Suspect]
     Indication: CHRONIC OBSTRUCTIVE PULMONARY DISEASE
     Route: 055
  9. PULMICORT FLEXHALER [Suspect]
     Indication: ASTHMA
     Route: 055
  10. PREDNISONE [Suspect]
     Indication: LUNG DISORDER
     Route: 048
  11. PREDNISONE [Suspect]
     Indication: LUNG DISORDER
     Route: 048
  12. ALBUTEROL [Concomitant]
     Indication: RESPIRATORY THERAPY
     Dosage: AS REQUIRED
     Route: 055
  13. ALBUTEROL [Concomitant]
     Indication: RESPIRATORY THERAPY
     Dosage: AS REQUIRED
     Route: 055
  14. GUAFENISIN [Concomitant]
     Indication: PRODUCTIVE COUGH
     Dosage: AS REQUIRED
     Route: 048
  15. OTHER MEDICTIONS [Concomitant]
     Indication: DYSPNOEA

REACTIONS (7)
  - Cataract [Unknown]
  - Clumsiness [Unknown]
  - Memory impairment [Unknown]
  - Weight increased [Unknown]
  - Anger [Unknown]
  - Anxiety [Unknown]
  - Drug effect increased [Unknown]
